FAERS Safety Report 15862895 (Version 1)
Quarter: 2018Q4

REPORT INFORMATION
  Report Type: Spontaneous
  Country: US (occurrence: US)
  Receive Date: 20181231
  Receipt Date: 20181231
  Transmission Date: 20190205
  Serious: Yes (Life-Threatening, Other)
  Sender: FDA-Public Use
  Company Number: None

PATIENT
  Age: 56 Year
  Sex: Male
  Weight: 75.9 kg

DRUGS (1)
  1. MIRCERA [Suspect]
     Active Substance: METHOXY POLYETHYLENE GLYCOL-EPOETIN BETA
     Indication: ANAEMIA
     Route: 042
     Dates: start: 20180614, end: 20180614

REACTIONS (6)
  - Pruritus [None]
  - Flushing [None]
  - Dyspnoea [None]
  - Chest discomfort [None]
  - Periorbital oedema [None]
  - Drug hypersensitivity [None]

NARRATIVE: CASE EVENT DATE: 20180614
